FAERS Safety Report 6933160-9 (Version None)
Quarter: 2010Q3

REPORT INFORMATION
  Report Type: 
  Country: None (occurrence: None)
  Receive Date: 20100820
  Receipt Date: 20100812
  Transmission Date: 20110219
  Serious: Yes (Hospitalization)
  Sender: FDA-Public Use
  Company Number: US-BIOGENIDEC-2009BI005069

PATIENT
  Age: 66 Year
  Sex: Female

DRUGS (2)
  1. AVONEX [Suspect]
     Indication: MULTIPLE SCLEROSIS
     Route: 030
     Dates: start: 19970601
  2. KLONOPIN [Concomitant]

REACTIONS (5)
  - FALL [None]
  - FEELING ABNORMAL [None]
  - HIP FRACTURE [None]
  - MULTIPLE SCLEROSIS [None]
  - WEIGHT DECREASED [None]
